FAERS Safety Report 7789922-1 (Version None)
Quarter: 2011Q3

REPORT INFORMATION
  Report Type: 
  Country: None (occurrence: None)
  Receive Date: 20110930
  Receipt Date: 20110720
  Transmission Date: 20111222
  Serious: No
  Sender: FDA-Public Use
  Company Number: US-ASTRAZENECA-2011SE43895

PATIENT
  Sex: Female

DRUGS (2)
  1. ARIMIDEX [Suspect]
     Route: 048
  2. ARIMIDEX [Suspect]
     Dosage: GENERIC PRODUCT

REACTIONS (10)
  - NECK PAIN [None]
  - BALANCE DISORDER [None]
  - JOINT STIFFNESS [None]
  - ARTHRALGIA [None]
  - HOT FLUSH [None]
  - DRY MOUTH [None]
  - PAIN IN EXTREMITY [None]
  - ORAL PAIN [None]
  - HEADACHE [None]
  - NAUSEA [None]
